FAERS Safety Report 24300479 (Version 3)
Quarter: 2024Q3

REPORT INFORMATION
  Report Type: Spontaneous
  Country: FR (occurrence: FR)
  Receive Date: 20240910
  Receipt Date: 20240912
  Transmission Date: 20241017
  Serious: Yes (Other)
  Sender: GE HEALTHCARE
  Company Number: FR-GE HEALTHCARE-2024CSU009848

PATIENT

DRUGS (1)
  1. CLARISCAN [Suspect]
     Active Substance: GADOTERATE MEGLUMINE
     Indication: Diagnostic procedure
     Dosage: UNK UNK, TOTAL
     Route: 065

REACTIONS (3)
  - Medical device site haemorrhage [Recovered/Resolved]
  - Syringe issue [Unknown]
  - Device leakage [Unknown]
